FAERS Safety Report 12877387 (Version 5)
Quarter: 2017Q3

REPORT INFORMATION
  Report Type: Spontaneous
  Country: JP (occurrence: JP)
  Receive Date: 20161024
  Receipt Date: 20170801
  Transmission Date: 20171127
  Serious: Yes (Death, Other)
  Sender: FDA-Public Use
  Company Number: PHJP2016JP030018

PATIENT
  Age: 49 Year
  Sex: Female
  Weight: 50 kg

DRUGS (10)
  1. MYONAL [Concomitant]
     Active Substance: EPERISONE HYDROCHLORIDE
     Indication: HEADACHE
     Dosage: 50 MG, QD
     Route: 048
     Dates: start: 20150918, end: 20161012
  2. AROMASIN [Suspect]
     Active Substance: EXEMESTANE
     Indication: BREAST CANCER RECURRENT
     Dosage: 25 MG, QD
     Route: 048
     Dates: start: 20160816, end: 20161007
  3. SELBEX [Concomitant]
     Active Substance: TEPRENONE
     Indication: PROPHYLAXIS AGAINST GASTROINTESTINAL ULCER
     Dosage: 50 MG, TID
     Route: 048
     Dates: start: 20150918, end: 20161018
  4. RANMARK [Concomitant]
     Active Substance: DENOSUMAB
     Indication: METASTASES TO BONE
     Dosage: 120 MG, QD
     Route: 058
     Dates: start: 20141114, end: 20161007
  5. AFINITOR [Suspect]
     Active Substance: EVEROLIMUS
     Indication: BREAST CANCER RECURRENT
     Dosage: 10 MG, QD
     Route: 048
     Dates: start: 20160816, end: 20161007
  6. VITAMEDIN [Concomitant]
     Active Substance: CYANOCOBALAMIN\PYRIDOXINE HYDROCHLORIDE\THIAMINE
     Indication: HYPOVITAMINOSIS
     Dosage: 1 DF, TID
     Route: 048
     Dates: start: 20141031, end: 20161018
  7. MYSLEE [Concomitant]
     Active Substance: ZOLPIDEM TARTRATE
     Indication: INSOMNIA
     Dosage: 10 MG, QD
     Route: 048
     Dates: start: 20141031, end: 20161018
  8. LOXONIN [Concomitant]
     Active Substance: LOXOPROFEN SODIUM
     Indication: HEADACHE
     Dosage: 60 MG, QD
     Route: 048
     Dates: start: 20150918, end: 20161012
  9. PYDOXAL [Concomitant]
     Active Substance: PYRIDOXAL
     Indication: HYPOVITAMINOSIS
     Dosage: 10 MG, TID
     Route: 048
     Dates: start: 20150724, end: 20161018
  10. URSODEOXYCHOLIC ACID [Concomitant]
     Active Substance: URSODIOL
     Indication: LIVER DISORDER
     Dosage: 100 MG, TID
     Route: 048
     Dates: start: 20160913, end: 20161018

REACTIONS (18)
  - Dyspnoea [Fatal]
  - Haematuria [Fatal]
  - Haemolytic anaemia [Fatal]
  - Malaise [Fatal]
  - Vomiting [Fatal]
  - Epstein-Barr virus infection [Fatal]
  - Osteonecrosis of jaw [Not Recovered/Not Resolved]
  - Hepatic function abnormal [Unknown]
  - Nausea [Fatal]
  - Alanine aminotransferase increased [Not Recovered/Not Resolved]
  - Stomatitis [Recovered/Resolved]
  - Thrombotic microangiopathy [Fatal]
  - Metastases to bone marrow [Fatal]
  - Altered state of consciousness [Fatal]
  - Delirium [Fatal]
  - Glossitis [Unknown]
  - Cytomegalovirus infection [Fatal]
  - Rash [Unknown]

NARRATIVE: CASE EVENT DATE: 20160913
